FAERS Safety Report 4390454-1 (Version None)
Quarter: 2004Q2

REPORT INFORMATION
  Report Type: 
  Country: None (occurrence: None)
  Receive Date: 20040630
  Receipt Date: 20040616
  Transmission Date: 20050107
  Serious: No
  Sender: FDA-Public Use
  Company Number: 04P-163-0264373-00

PATIENT
  Age: 47 Year
  Sex: Female

DRUGS (8)
  1. KALETRA [Suspect]
     Indication: HIV INFECTION
     Dosage: PER ORAL
     Route: 048
     Dates: end: 20040507
  2. BACTRIM [Concomitant]
  3. RANITIDINE [Concomitant]
  4. THEO-DUR [Concomitant]
  5. ALBUTEROL SULFATE [Concomitant]
  6. FLUTICASONE PROPIONATE [Concomitant]
  7. STAVUDINE EXTENDED RELEASE [Concomitant]
  8. EMTRIVA [Concomitant]

REACTIONS (7)
  - DECREASED APPETITE [None]
  - DEHYDRATION [None]
  - HYPERLACTACIDAEMIA [None]
  - HYPERTHYROIDISM [None]
  - HYPOKALAEMIA [None]
  - MYALGIA [None]
  - NAUSEA [None]
